FAERS Safety Report 9286024 (Version 1)
Quarter: 2013Q2

REPORT INFORMATION
  Report Type: Spontaneous
  Country: US (occurrence: US)
  Receive Date: 20130513
  Receipt Date: 20130513
  Transmission Date: 20140414
  Serious: Yes (Death, Hospitalization, Other)
  Sender: FDA-Public Use
  Company Number: US-BAXTER-2013BAX016895

PATIENT
  Age: 17 Month
  Sex: Male

DRUGS (1)
  1. 5% DEXTROSE INJECTION USP [Suspect]
     Indication: DEHYDRATION
     Dosage: 40 ML/KG
     Route: 042

REACTIONS (2)
  - Fluid overload [Fatal]
  - Grand mal convulsion [Recovered/Resolved]
